FAERS Safety Report 6141212-9 (Version None)
Quarter: 2009Q2

REPORT INFORMATION
  Report Type: 
  Country: None (occurrence: None)
  Receive Date: 20090402
  Receipt Date: 20090324
  Transmission Date: 20091009
  Serious: Yes (Death, Hospitalization)
  Sender: FDA-Public Use
  Company Number: US-WYE-H08697209

PATIENT
  Age: 40 Year
  Sex: Male
  Weight: 108.6 kg

DRUGS (1)
  1. EFFEXOR XR [Suspect]
     Indication: DEPRESSION
     Dosage: OVERDOSE AMOUNT NINETY 150 MG CAPSULES AND SEVENT-FIVE 75 MG CAPSULES/ 19 G TOTAL AMOUNT INGESTED
     Route: 048

REACTIONS (13)
  - CARDIOTOXICITY [None]
  - COMPLETED SUICIDE [None]
  - ELECTROCARDIOGRAM QRS COMPLEX PROLONGED [None]
  - ELECTROCARDIOGRAM QT PROLONGED [None]
  - GRAND MAL CONVULSION [None]
  - HYPERHIDROSIS [None]
  - INTENTIONAL OVERDOSE [None]
  - LETHARGY [None]
  - NAUSEA [None]
  - SINUS TACHYCARDIA [None]
  - SOMNOLENCE [None]
  - VENTRICULAR FIBRILLATION [None]
  - VOMITING [None]
